FAERS Safety Report 9010585 (Version 6)
Quarter: 2014Q3

REPORT INFORMATION
  Report Type: Spontaneous
  Country: US (occurrence: US)
  Receive Date: 20130109
  Receipt Date: 20140909
  Transmission Date: 20150326
  Serious: Yes (Hospitalization, Disabling, Other)
  Sender: FDA-Public Use
  Company Number: US-009507513-1301USA000781

PATIENT
  Sex: Female
  Weight: 68.48 kg

DRUGS (4)
  1. SYNTHROID [Concomitant]
     Active Substance: LEVOTHYROXINE SODIUM
     Indication: THYROID DISORDER
     Dosage: 0.1 - 0.125 MG QD
     Route: 048
     Dates: start: 1973
  2. FOSAMAX [Suspect]
     Active Substance: ALENDRONATE SODIUM
     Dosage: 10 MG, QD
     Route: 048
  3. FOSAMAX PLUS D [Suspect]
     Active Substance: ALENDRONATE SODIUM\CHOLECALCIFEROL
     Dosage: 70 MG, UNK
     Route: 048
  4. FOSAMAX [Suspect]
     Active Substance: ALENDRONATE SODIUM
     Indication: OSTEOPOROSIS
     Dosage: 70 MG, QW
     Route: 048

REACTIONS (35)
  - Femur fracture [Not Recovered/Not Resolved]
  - Osteopenia [Unknown]
  - Fracture delayed union [Unknown]
  - Upper limb fracture [Unknown]
  - Oedema peripheral [Not Recovered/Not Resolved]
  - Limb injury [Unknown]
  - Hysterectomy [Unknown]
  - Open reduction of fracture [Unknown]
  - Intervertebral disc protrusion [Unknown]
  - Lumbar spinal stenosis [Unknown]
  - Joint injury [Unknown]
  - Mitochondrial myopathy [Unknown]
  - Muscle strain [Unknown]
  - Polyneuropathy idiopathic progressive [Unknown]
  - Femur fracture [Recovered/Resolved]
  - Low turnover osteopathy [Unknown]
  - Headache [Not Recovered/Not Resolved]
  - Surgery [Unknown]
  - Osteoporosis [Unknown]
  - Stress fracture [Unknown]
  - Chronic sinusitis [Not Recovered/Not Resolved]
  - Rotator cuff syndrome [Unknown]
  - Muscle strain [Unknown]
  - Intramedullary rod insertion [Unknown]
  - Tonsillectomy [Unknown]
  - Intervertebral disc disorder [Unknown]
  - Dysphonia [Unknown]
  - Gastrooesophageal reflux disease [Unknown]
  - Pain in extremity [Not Recovered/Not Resolved]
  - Femur fracture [Unknown]
  - Spinal decompression [Unknown]
  - Complex regional pain syndrome [Unknown]
  - Osteoarthritis [Unknown]
  - Spinal claudication [Unknown]
  - Pain in extremity [Unknown]

NARRATIVE: CASE EVENT DATE: 20030210
